FAERS Safety Report 23685584 (Version 1)
Quarter: 2024Q1

REPORT INFORMATION
  Report Type: Spontaneous
  Country: GB (occurrence: GB)
  Receive Date: 20240329
  Receipt Date: 20240329
  Transmission Date: 20240410
  Serious: Yes (Hospitalization)
  Sender: FDA-Public Use
  Company Number: None

PATIENT
  Age: 72 Year
  Sex: Male

DRUGS (9)
  1. METFORMIN [Suspect]
     Active Substance: METFORMIN HYDROCHLORIDE
     Route: 065
  2. BETAHISTINE [Concomitant]
     Active Substance: BETAHISTINE
     Dosage: TIME INTERVAL: 0.33333333 DAYS
  3. COCODAMOL [Concomitant]
     Active Substance: ACETAMINOPHEN\CODEINE PHOSPHATE
     Indication: Pain in extremity
     Dosage: -30/500 PRN UP TO THREE TIMES A DAY
  4. VOLTAROL [Concomitant]
     Active Substance: DICLOFENAC SODIUM
     Dosage: VOLTAROL 12 HOUR EMULGEL P
  5. ATORVASTATIN [Concomitant]
     Active Substance: ATORVASTATIN
  6. DEXTROSE [Concomitant]
     Active Substance: DEXTROSE\DEXTROSE MONOHYDRATE
  7. GAVISCON [Concomitant]
     Active Substance: ALUMINUM HYDROXIDE\MAGNESIUM CARBONATE
     Dosage: TIME INTERVAL: 0.33333333 DAYS: DOUBLE ACTION LIQUID PEPPERMINT (RECKITT BENCKISER HEALTHCARE (UK...
  8. OMEPRAZOLE [Concomitant]
     Active Substance: OMEPRAZOLE
  9. NAPROXEN [Concomitant]
     Active Substance: NAPROXEN

REACTIONS (2)
  - Lactic acidosis [Recovered/Resolved]
  - Blood glucose increased [Unknown]
